FAERS Safety Report 18930210 (Version 1)
Quarter: 2021Q1

REPORT INFORMATION
  Report Type: Spontaneous
  Country: RU (occurrence: RU)
  Receive Date: 20210224
  Receipt Date: 20210224
  Transmission Date: 20210420
  Serious: Yes (Hospitalization)
  Sender: FDA-Public Use
  Company Number: RU-JNJFOC-20210238427

PATIENT
  Age: 59 Year
  Sex: Male
  Weight: 75 kg

DRUGS (10)
  1. XARELTO [Suspect]
     Active Substance: RIVAROXABAN
     Indication: MYOCARDIAL FIBROSIS
  2. PERINDOPRIL [Concomitant]
     Active Substance: PERINDOPRIL
  3. XARELTO [Suspect]
     Active Substance: RIVAROXABAN
     Indication: MYOCARDIAL ISCHAEMIA
  4. XARELTO [Suspect]
     Active Substance: RIVAROXABAN
     Indication: ATRIAL FIBRILLATION
  5. GLIBENCLAMIDE [Concomitant]
     Active Substance: GLYBURIDE
  6. XARELTO [Suspect]
     Active Substance: RIVAROXABAN
     Indication: CARDIAC ANEURYSM
     Dosage: 20 MG, QD
     Route: 048
     Dates: start: 20210129, end: 20210129
  7. BISOPROLOL [Concomitant]
     Active Substance: BISOPROLOL
  8. SPIRONOLACTONE. [Concomitant]
     Active Substance: SPIRONOLACTONE
  9. XARELTO [Suspect]
     Active Substance: RIVAROXABAN
     Indication: ATRIAL FLUTTER
  10. TIOTROPIUM BROMIDE [Concomitant]
     Active Substance: TIOTROPIUM BROMIDE

REACTIONS (4)
  - Lip swelling [Recovered/Resolved with Sequelae]
  - Swollen tongue [Recovered/Resolved with Sequelae]
  - Tachycardia [Recovered/Resolved with Sequelae]
  - Angioedema [Recovered/Resolved with Sequelae]

NARRATIVE: CASE EVENT DATE: 20210129
